FAERS Safety Report 13305516 (Version 2)
Quarter: 2017Q3

REPORT INFORMATION
  Report Type: Other
  Country: GB (occurrence: GB)
  Receive Date: 20170308
  Receipt Date: 20170809
  Transmission Date: 20171127
  Serious: Yes (Life-Threatening, Other)
  Sender: FDA-Public Use
  Company Number: GB-LUPIN PHARMACEUTICALS INC.-E2B_00007480

PATIENT
  Age: 16 Year
  Sex: Female

DRUGS (2)
  1. SERTRALINE [Suspect]
     Active Substance: SERTRALINE HYDROCHLORIDE
     Indication: PANIC DISORDER
     Dosage: 25 MG, UNK
     Route: 065
     Dates: start: 201511
  2. ARIPIPRAZOLE. [Concomitant]
     Active Substance: ARIPIPRAZOLE
     Indication: DEPRESSION
     Dosage: 2.5 MG, UNK
     Route: 065
     Dates: start: 201511

REACTIONS (7)
  - Intentional overdose [Recovered/Resolved]
  - Mood swings [Unknown]
  - Abnormal behaviour [Unknown]
  - Suicide attempt [Unknown]
  - Agitation [Unknown]
  - Flat affect [Unknown]
  - Malaise [Unknown]

NARRATIVE: CASE EVENT DATE: 20151207
